FAERS Safety Report 5415343-2 (Version None)
Quarter: 2007Q3

REPORT INFORMATION
  Report Type: 
  Country: None (occurrence: None)
  Receive Date: 20070813
  Receipt Date: 20070710
  Transmission Date: 20080115
  Serious: Yes (Hospitalization)
  Sender: FDA-Public Use
  Company Number: 2007RR-08646

PATIENT
  Age: 40 Year
  Sex: Female

DRUGS (3)
  1. SERTRALINE [Suspect]
     Indication: OVERDOSE
     Dosage: 2250 MG; 50 MG, BID
  2. DIAZEPAM [Suspect]
     Indication: OVERDOSE
     Dosage: 100 MG
  3. TEMAZEPAM [Suspect]
     Indication: OVERDOSE
     Dosage: 400 MG

REACTIONS (5)
  - ELECTROCARDIOGRAM QT PROLONGED [None]
  - ELECTROCARDIOGRAM T WAVE INVERSION [None]
  - FATIGUE [None]
  - MULTIPLE DRUG OVERDOSE INTENTIONAL [None]
  - SOMNOLENCE [None]
